FAERS Safety Report 24866802 (Version 1)
Quarter: 2025Q1

REPORT INFORMATION
  Report Type: Other
  Country: GB (occurrence: GB)
  Receive Date: 20250121
  Receipt Date: 20250121
  Transmission Date: 20250408
  Serious: Yes (Other)
  Sender: MACLEODS
  Company Number: None

PATIENT

DRUGS (1)
  1. MEMANTINE [Suspect]
     Active Substance: MEMANTINE
     Indication: Dementia
     Dosage: 10 MG OD
     Route: 065

REACTIONS (3)
  - Bradycardia [Recovered/Resolved]
  - Fall [Unknown]
  - Craniofacial fracture [Unknown]

NARRATIVE: CASE EVENT DATE: 20241007
